FAERS Safety Report 9619681 (Version 1)
Quarter: 2013Q4

REPORT INFORMATION
  Report Type: Spontaneous
  Country: MX (occurrence: MX)
  Receive Date: 20131014
  Receipt Date: 20131014
  Transmission Date: 20140711
  Serious: Yes (Other)
  Sender: FDA-Public Use
  Company Number: MX-ELI_LILLY_AND_COMPANY-MX201310003188

PATIENT
  Age: 73 Year
  Sex: Female

DRUGS (2)
  1. HUMALOG LISPRO [Suspect]
     Dosage: UNK
     Dates: start: 2011
  2. HUMULIN N [Suspect]
     Dosage: UNK
     Dates: start: 2011

REACTIONS (1)
  - Leukaemia [Unknown]
